FAERS Safety Report 5614193-1 (Version None)
Quarter: 2008Q1

REPORT INFORMATION
  Report Type: 
  Country: None (occurrence: None)
  Receive Date: 20080205
  Receipt Date: 20080201
  Transmission Date: 20080703
  Serious: Yes (Other)
  Sender: FDA-Public Use
  Company Number: B0506559A

PATIENT
  Age: 56 Year
  Sex: Male

DRUGS (1)
  1. DILATREND [Suspect]
     Indication: DRUG USE FOR UNKNOWN INDICATION
     Dosage: 12.5MG UNKNOWN
     Route: 048
     Dates: start: 20050815, end: 20070615

REACTIONS (2)
  - DIZZINESS [None]
  - MACULAR DEGENERATION [None]
